FAERS Safety Report 6574947-4 (Version None)
Quarter: 2010Q1

REPORT INFORMATION
  Report Type: 
  Country: None (occurrence: None)
  Receive Date: 20100209
  Receipt Date: 20100201
  Transmission Date: 20100710
  Serious: Yes (Hospitalization, Other)
  Sender: FDA-Public Use
  Company Number: PHHO2009US16333

PATIENT
  Sex: Female
  Weight: 78.6 kg

DRUGS (7)
  1. ALDESLEUKIN C-ALDE+INJ [Suspect]
     Indication: METASTATIC RENAL CELL CARCINOMA
     Dosage: 40.6 UNK, UNK
     Route: 042
     Dates: start: 20090915
  2. SORAFENIB [Concomitant]
     Indication: METASTATIC RENAL CELL CARCINOMA
     Dosage: UNK
  3. ACETAMINOPHEN [Concomitant]
  4. PAMIDRONATE DISODIUM [Concomitant]
  5. ZOFRAN [Concomitant]
  6. COUMADIN [Concomitant]
  7. COMPAZINE [Concomitant]

REACTIONS (3)
  - BLOOD CREATINE PHOSPHOKINASE MB INCREASED [None]
  - CAPILLARY LEAK SYNDROME [None]
  - TROPONIN INCREASED [None]
